FAERS Safety Report 19834881 (Version 2)
Quarter: 2021Q4

REPORT INFORMATION
  Report Type: Report from Study
  Country: CA (occurrence: CA)
  Receive Date: 20210915
  Receipt Date: 20211124
  Transmission Date: 20220303
  Serious: Yes (Other)
  Sender: FDA-Public Use
  Company Number: CA-ABBVIE-21K-028-4078842-00

PATIENT
  Sex: Male

DRUGS (1)
  1. HUMIRA [Suspect]
     Active Substance: ADALIMUMAB
     Indication: Psoriasis
     Route: 058
     Dates: start: 20120430, end: 202107

REACTIONS (27)
  - Obstruction [Unknown]
  - Coronary artery occlusion [Unknown]
  - Cutaneous T-cell lymphoma [Unknown]
  - Cutaneous T-cell lymphoma [Not Recovered/Not Resolved]
  - Papilloma [Unknown]
  - Neurodermatitis [Unknown]
  - Perivascular dermatitis [Unknown]
  - Photodermatosis [Unknown]
  - Angiopathy [Unknown]
  - Ulcerative keratitis [Unknown]
  - Mean cell volume increased [Unknown]
  - Mean cell haemoglobin concentration decreased [Unknown]
  - Red cell distribution width increased [Unknown]
  - Bilirubin conjugated increased [Unknown]
  - White blood cell disorder [Unknown]
  - Lymphocytic infiltration [Unknown]
  - Eczema [Unknown]
  - Localised oedema [Unknown]
  - Inflammation [Unknown]
  - Blood lactate dehydrogenase increased [Unknown]
  - Eosinophilia [Unknown]
  - Blood bilirubin increased [Unknown]
  - Atrial fibrillation [Unknown]
  - Angina pectoris [Unknown]
  - Rash macular [Not Recovered/Not Resolved]
  - Red blood cell count decreased [Unknown]
  - Dermatitis psoriasiform [Unknown]

NARRATIVE: CASE EVENT DATE: 20210101
